FAERS Safety Report 25536910 (Version 1)
Quarter: 2025Q3

REPORT INFORMATION
  Report Type: Spontaneous
  Country: TW (occurrence: TW)
  Receive Date: 20250710
  Receipt Date: 20250710
  Transmission Date: 20251020
  Serious: Yes (Other)
  Sender: ASTELLAS
  Company Number: TW-ASTELLAS-2025-AER-036829

PATIENT
  Sex: Male

DRUGS (1)
  1. ZOLBETUXIMAB [Suspect]
     Active Substance: ZOLBETUXIMAB
     Indication: Product used for unknown indication
     Route: 065

REACTIONS (3)
  - Hepatitis [Recovered/Resolved]
  - Dizziness [Recovered/Resolved]
  - Blood albumin decreased [Recovered/Resolved]
